FAERS Safety Report 5176909-0 (Version None)
Quarter: 2006Q4

REPORT INFORMATION
  Report Type: 
  Country: None (occurrence: None)
  Receive Date: 20061206
  Receipt Date: 20061129
  Transmission Date: 20070319
  Serious: Yes (Death, Other)
  Sender: FDA-Public Use
  Company Number: 225181

PATIENT
  Age: 45 Year
  Sex: Female

DRUGS (12)
  1. MABTHERA (RITUXIMAB)CONC FOR SOLUTION FOR INFUSION [Suspect]
     Indication: SYSTEMIC LUPUS ERYTHEMATOSUS
     Dosage: 375 MG/M2, 1/WEEK, INTRAVENOUS; 375 MG/M2, SINGLE
     Route: 042
     Dates: start: 20050401, end: 20050501
  2. MABTHERA (RITUXIMAB)CONC FOR SOLUTION FOR INFUSION [Suspect]
     Indication: SYSTEMIC LUPUS ERYTHEMATOSUS
     Dosage: 375 MG/M2, 1/WEEK, INTRAVENOUS; 375 MG/M2, SINGLE
     Route: 042
     Dates: start: 20051101
  3. AMLODIPINE BESYLATE [Concomitant]
  4. CALCICHEW D3 (CALCIUM CARBONATE, CHOLECALCIFEROL) [Concomitant]
  5. HYDROXYCHLOROQUINE (HYDROCHLOROQUINE SULFATE) [Concomitant]
  6. LEVOTHYROXINE SODIUM [Concomitant]
  7. CLARITIN (LORTADINE) [Concomitant]
  8. NUVELLE (ESTRADIOL VALERATE, LEVONORGESTREL) [Concomitant]
  9. FOLIC ACID [Concomitant]
  10. IMMUNE GLOBULIN INTRAVENOUS (HUMAN) [Concomitant]
  11. LEVOMEPROMAZINE (METHOTRIMEPRAZINE) [Concomitant]
  12. PROBENECID [Concomitant]

REACTIONS (24)
  - ACUTE RESPIRATORY DISTRESS SYNDROME [None]
  - ARTHRALGIA [None]
  - BRAIN STEM SYNDROME [None]
  - CEREBELLAR SYNDROME [None]
  - COORDINATION ABNORMAL [None]
  - DYSARTHRIA [None]
  - DYSPHAGIA [None]
  - HIV INFECTION [None]
  - INTESTINAL OBSTRUCTION [None]
  - JC VIRUS INFECTION [None]
  - MOBILITY DECREASED [None]
  - MOUTH ULCERATION [None]
  - NEUROLOGICAL SYMPTOM [None]
  - NEUTROPHIL COUNT DECREASED [None]
  - NO REACTION ON PREVIOUS EXPOSURE TO DRUG [None]
  - NYSTAGMUS [None]
  - PNEUMONIA ASPIRATION [None]
  - POST PROCEDURAL PNEUMONIA [None]
  - PROGRESSIVE MULTIFOCAL LEUKOENCEPHALOPATHY [None]
  - RASH [None]
  - RESPIRATORY TRACT INFECTION [None]
  - SPEECH DISORDER [None]
  - URETERIC OBSTRUCTION [None]
  - WHITE BLOOD CELL COUNT DECREASED [None]
